FAERS Safety Report 6900204-X (Version None)
Quarter: 2010Q3

REPORT INFORMATION
  Report Type: 
  Country: None (occurrence: None)
  Receive Date: 20100803
  Receipt Date: 20100730
  Transmission Date: 20110219
  Serious: Yes (Hospitalization)
  Sender: FDA-Public Use
  Company Number: CA-ROCHE-414040

PATIENT
  Sex: Male
  Weight: 69.6 kg

DRUGS (9)
  1. BEVACIZUMAB [Suspect]
     Dosage: FORM REPORTED AS INFUSION.
     Route: 042
     Dates: start: 20050411, end: 20050815
  2. CAPECITABINE [Suspect]
     Dosage: GIVEN FROM DAYS ONE TO FOURTEEN OF A THREE WEEK CYCLE.
     Route: 048
     Dates: start: 20050411, end: 20050815
  3. OXALIPLATIN [Suspect]
     Dosage: FORM REPORTED AS INFUSION.
     Route: 042
     Dates: start: 20050411, end: 20050815
  4. EMPRACET [Concomitant]
     Dates: start: 20050215
  5. VIT C [Concomitant]
  6. FERROUS SULFATE [Concomitant]
     Dates: start: 20050303, end: 20050524
  7. ONDANSETRON [Concomitant]
     Dates: start: 20050411, end: 20050815
  8. HEPARINE SODIQUE [Concomitant]
     Dates: start: 20050421, end: 20051121
  9. HEPARINE SODIQUE [Concomitant]

REACTIONS (5)
  - BLOOD CHOLESTEROL INCREASED [None]
  - CEREBROVASCULAR ACCIDENT [None]
  - ELECTROCARDIOGRAM ABNORMAL [None]
  - HIGH DENSITY LIPOPROTEIN INCREASED [None]
  - LOW DENSITY LIPOPROTEIN INCREASED [None]
